FAERS Safety Report 24209980 (Version 4)
Quarter: 2024Q4

REPORT INFORMATION
  Report Type: Report from Study
  Country: JP (occurrence: JP)
  Receive Date: 20240814
  Receipt Date: 20241224
  Transmission Date: 20250114
  Serious: Yes (Other)
  Sender: OTSUKA
  Company Number: JP-OTSUKA-2024_021837

PATIENT
  Age: 56 Year
  Sex: Female

DRUGS (42)
  1. TOLVAPTAN [Suspect]
     Active Substance: TOLVAPTAN
     Indication: Cardiac failure
     Dosage: 8 MG/DAY, QD
     Route: 041
     Dates: start: 20240323, end: 20240328
  2. TOLVAPTAN [Suspect]
     Active Substance: TOLVAPTAN
     Indication: Fluid retention
     Dosage: 16 MG/DAY, QD
     Route: 041
     Dates: start: 20240318, end: 20240320
  3. TOLVAPTAN [Suspect]
     Active Substance: TOLVAPTAN
     Indication: Product used for unknown indication
     Dosage: 7.5 MG/DAY
     Route: 048
     Dates: start: 20240229, end: 20240229
  4. AMINO ACIDS\DEXTROSE\ELECTROLYTES NOS\MINERALS\VITAMINS [Suspect]
     Active Substance: AMINO ACIDS\DEXTROSE\ELECTROLYTES NOS\MINERALS\VITAMINS
     Indication: Parenteral nutrition
     Dosage: UNK
     Route: 050
     Dates: start: 20240325, end: 20240328
  5. AMINO ACIDS\DEXTROSE\ELECTROLYTES NOS\MINERALS\VITAMINS [Suspect]
     Active Substance: AMINO ACIDS\DEXTROSE\ELECTROLYTES NOS\MINERALS\VITAMINS
     Dosage: UNK
     Route: 050
     Dates: start: 20240312, end: 20240320
  6. AMINO ACIDS\DEXTROSE\ELECTROLYTES NOS\MINERALS\VITAMINS [Suspect]
     Active Substance: AMINO ACIDS\DEXTROSE\ELECTROLYTES NOS\MINERALS\VITAMINS
     Dosage: UNK
     Route: 050
     Dates: start: 20240402, end: 20240403
  7. AMINO ACIDS\DEXTROSE\ELECTROLYTES NOS\MINERALS\VITAMINS [Suspect]
     Active Substance: AMINO ACIDS\DEXTROSE\ELECTROLYTES NOS\MINERALS\VITAMINS
     Dosage: UNK
     Route: 050
     Dates: start: 20240416
  8. CARPERITIDE [Concomitant]
     Active Substance: CARPERITIDE
     Indication: Product used for unknown indication
     Dosage: 3840 MCG/DAY
     Route: 050
     Dates: start: 20240228, end: 20240329
  9. FUROSEMIDE [Concomitant]
     Active Substance: FUROSEMIDE
     Indication: Product used for unknown indication
     Dosage: 60 MG/DAY
     Route: 050
     Dates: start: 20240228, end: 20240328
  10. FUROSEMIDE [Concomitant]
     Active Substance: FUROSEMIDE
     Indication: Product used for unknown indication
     Dosage: 40 MG/DAY
     Route: 048
     Dates: start: 20240325, end: 20240328
  11. AZOSEMIDE [Concomitant]
     Active Substance: AZOSEMIDE
     Indication: Product used for unknown indication
     Dosage: 30 MG/DAY
     Route: 048
     Dates: start: 20240323, end: 20240328
  12. LEVOFLOXACIN HEMIHYDRATE [Concomitant]
     Active Substance: LEVOFLOXACIN
     Indication: Pneumonia
     Dosage: UNK
     Route: 050
     Dates: start: 20240309, end: 20240312
  13. LEVOFLOXACIN HEMIHYDRATE [Concomitant]
     Active Substance: LEVOFLOXACIN
     Indication: Product used for unknown indication
     Dosage: UNK
     Route: 050
     Dates: start: 20240314, end: 20240318
  14. DOBUTAMINE HYDROCHLORIDE [Concomitant]
     Active Substance: DOBUTAMINE HYDROCHLORIDE
     Indication: Cardiac failure
     Dosage: UNK
     Route: 050
     Dates: start: 20240301, end: 20240411
  15. AMPICILLIN SODIUM\SULBACTAM SODIUM [Concomitant]
     Active Substance: AMPICILLIN SODIUM\SULBACTAM SODIUM
     Indication: Pneumonia
     Dosage: UNK
     Route: 050
     Dates: start: 20240228, end: 20240306
  16. AMPICILLIN SODIUM\SULBACTAM SODIUM [Concomitant]
     Active Substance: AMPICILLIN SODIUM\SULBACTAM SODIUM
     Indication: Product used for unknown indication
  17. HEPARIN SODIUM [Concomitant]
     Active Substance: HEPARIN SODIUM
     Indication: Cardiac failure
     Dosage: UNK
     Route: 050
     Dates: start: 20240228, end: 20240311
  18. HUMULIN R [Concomitant]
     Active Substance: INSULIN HUMAN
     Indication: Diabetes mellitus
     Dosage: UNK
     Route: 050
     Dates: start: 20240229, end: 20240516
  19. HUMULIN R [Concomitant]
     Active Substance: INSULIN HUMAN
     Indication: Product used for unknown indication
  20. CYSTEINE HYDROCHLORIDE;ENOXOLONE;GLYCINE [Concomitant]
     Indication: Liver disorder
     Dosage: UNK
     Route: 050
     Dates: start: 20240308, end: 20240516
  21. CYSTEINE HYDROCHLORIDE;ENOXOLONE;GLYCINE [Concomitant]
     Indication: Product used for unknown indication
  22. ALBUMIN HUMAN [Concomitant]
     Active Substance: ALBUMIN HUMAN
     Indication: Hypoalbuminaemia
     Dosage: UNK
     Route: 050
     Dates: start: 20240311, end: 20240325
  23. ALBUMIN HUMAN [Concomitant]
     Active Substance: ALBUMIN HUMAN
     Indication: Product used for unknown indication
  24. OMEPRAZOLE SODIUM [Concomitant]
     Active Substance: OMEPRAZOLE SODIUM
     Indication: Prophylaxis against gastrointestinal ulcer
     Dosage: UNK
     Route: 050
     Dates: start: 20240322, end: 20240501
  25. CEFEPIME HYDROCHLORIDE [Concomitant]
     Active Substance: CEFEPIME HYDROCHLORIDE
     Indication: Pneumonia
     Dosage: UNK
     Route: 050
     Dates: start: 20240319, end: 20240322
  26. CEFEPIME HYDROCHLORIDE [Concomitant]
     Active Substance: CEFEPIME HYDROCHLORIDE
     Indication: Product used for unknown indication
  27. PIPERACILLIN SODIUM\TAZOBACTAM SODIUM [Concomitant]
     Active Substance: PIPERACILLIN SODIUM\TAZOBACTAM SODIUM
     Indication: Pneumonia
     Dosage: UNK
     Route: 050
     Dates: start: 20240307, end: 20240308
  28. PIPERACILLIN SODIUM\TAZOBACTAM SODIUM [Concomitant]
     Active Substance: PIPERACILLIN SODIUM\TAZOBACTAM SODIUM
     Indication: Product used for unknown indication
     Dosage: UNK
     Route: 050
     Dates: start: 20240313, end: 20240313
  29. PIPERACILLIN SODIUM\TAZOBACTAM SODIUM [Concomitant]
     Active Substance: PIPERACILLIN SODIUM\TAZOBACTAM SODIUM
     Dosage: UNK
     Route: 050
     Dates: start: 20240323, end: 20240402
  30. ARGATROBAN [Concomitant]
     Active Substance: ARGATROBAN
     Indication: Heparin-induced thrombocytopenia
     Dosage: UNK
     Route: 050
     Dates: start: 20240311, end: 20240312
  31. ARGATROBAN [Concomitant]
     Active Substance: ARGATROBAN
     Indication: Product used for unknown indication
     Dosage: UNK
     Route: 050
     Dates: start: 20240320, end: 20240327
  32. ENTRESTO [Concomitant]
     Active Substance: SACUBITRIL\VALSARTAN
     Indication: Cardiac failure
     Dosage: UNK
     Route: 048
     Dates: start: 20240322, end: 20240328
  33. LANSOPRAZOLE [Concomitant]
     Active Substance: LANSOPRAZOLE
     Indication: Prophylaxis against gastrointestinal ulcer
     Dosage: UNK
     Route: 048
     Dates: start: 20240323, end: 20240328
  34. POTASSIUM ASPARTATE [Concomitant]
     Active Substance: POTASSIUM ASPARTATE
     Indication: Hypokalaemia
     Dosage: UNK
     Route: 048
     Dates: start: 20240323, end: 20240328
  35. POTASSIUM ASPARTATE [Concomitant]
     Active Substance: POTASSIUM ASPARTATE
     Indication: Product used for unknown indication
  36. BLONANSERIN [Concomitant]
     Active Substance: BLONANSERIN
     Indication: Schizophrenia
     Dosage: UNK
     Route: 062
     Dates: start: 20240301, end: 20240516
  37. BLONANSERIN [Concomitant]
     Active Substance: BLONANSERIN
     Indication: Product used for unknown indication
  38. DAYVIGO [Concomitant]
     Active Substance: LEMBOREXANT
     Indication: Product used for unknown indication
     Dosage: UNK
     Route: 048
     Dates: start: 20240326, end: 20240327
  39. DAYVIGO [Concomitant]
     Active Substance: LEMBOREXANT
     Indication: Insomnia
  40. ESAXERENONE [Concomitant]
     Active Substance: ESAXERENONE
     Indication: Cardiac failure
     Dosage: UNK
     Route: 048
     Dates: start: 20240325, end: 20240328
  41. DEXTROSE [Concomitant]
     Active Substance: DEXTROSE MONOHYDRATE
     Indication: Parenteral nutrition
     Dosage: UNK
     Route: 050
     Dates: start: 20240321, end: 20240324
  42. DEXTROSE [Concomitant]
     Active Substance: DEXTROSE MONOHYDRATE
     Dosage: UNK
     Route: 050
     Dates: start: 20240404, end: 20240415

REACTIONS (2)
  - Haemoglobin decreased [Unknown]
  - Hypernatraemia [Recovering/Resolving]

NARRATIVE: CASE EVENT DATE: 20240320
